FAERS Safety Report 9233049 (Version 1)
Quarter: 2013Q2

REPORT INFORMATION
  Report Type: Spontaneous
  Country: US (occurrence: None)
  Receive Date: 20130415
  Receipt Date: 20130415
  Transmission Date: 20140414
  Serious: Yes (Life-Threatening, Hospitalization)
  Sender: FDA-Public Use
  Company Number: None

PATIENT
  Age: 38 Year
  Sex: Female

DRUGS (1)
  1. COPAXONE [Suspect]

REACTIONS (6)
  - Chest pain [None]
  - Dizziness [None]
  - Tremor [None]
  - Rash generalised [None]
  - Feeling hot [None]
  - Skin discolouration [None]
